FAERS Safety Report 10796188 (Version 1)
Quarter: 2015Q1

REPORT INFORMATION
  Report Type: Spontaneous
  Country: GR (occurrence: GR)
  Receive Date: 20150216
  Receipt Date: 20150216
  Transmission Date: 20150721
  Serious: Yes (Death)
  Sender: FDA-Public Use
  Company Number: GR-009507513-1502GRC003960

PATIENT
  Age: 78 Year
  Sex: Male

DRUGS (1)
  1. INEGY [Suspect]
     Active Substance: EZETIMIBE\SIMVASTATIN
     Indication: DYSLIPIDAEMIA
     Dosage: 1 TABLET EVERY DAY
     Route: 048
     Dates: start: 201002

REACTIONS (1)
  - Death [Fatal]

NARRATIVE: CASE EVENT DATE: 20141226
